FAERS Safety Report 9472200 (Version 1)
Quarter: 2013Q3

REPORT INFORMATION
  Report Type: Spontaneous
  Country: US (occurrence: None)
  Receive Date: 20130821
  Receipt Date: 20130821
  Transmission Date: 20140515
  Serious: No
  Sender: FDA-Public Use
  Company Number: None

PATIENT
  Age: 12 Year
  Sex: Male
  Weight: 37.65 kg

DRUGS (1)
  1. CONCERTA [Suspect]
     Indication: ATTENTION DEFICIT/HYPERACTIVITY DISORDER
     Route: 048
     Dates: start: 201308, end: 201307

REACTIONS (8)
  - Drug ineffective [None]
  - Restlessness [None]
  - Agitation [None]
  - Aggression [None]
  - Social avoidant behaviour [None]
  - Condition aggravated [None]
  - Product substitution issue [None]
  - Product quality issue [None]
